FAERS Safety Report 22517662 (Version 1)
Quarter: 2023Q2

REPORT INFORMATION
  Report Type: Spontaneous
  Country: FR (occurrence: FR)
  Receive Date: 20230604
  Receipt Date: 20230604
  Transmission Date: 20230721
  Serious: Yes (Life-Threatening, Hospitalization, Other)
  Sender: FDA-Public Use
  Company Number: FR-AFSSAPS-PC2023000495

PATIENT
  Age: 71 Year
  Sex: Female
  Weight: 156 kg

DRUGS (5)
  1. CARVEDILOL [Suspect]
     Active Substance: CARVEDILOL
     Indication: Cardiac failure
     Dosage: 25 MILLIGRAM, ONCE A DAY(25MG PER DAY)
     Route: 048
     Dates: end: 20230428
  2. IRBESARTAN [Suspect]
     Active Substance: IRBESARTAN
     Indication: Hypertension
     Dosage: 300 MILLIGRAM, ONCE A DAY(150MG TWICE A DAY)
     Route: 048
     Dates: end: 20230428
  3. SPIRONOLACTONE [Suspect]
     Active Substance: SPIRONOLACTONE
     Indication: Hypertension
     Dosage: 50 MILLIGRAM, ONCE A DAY(50MG PER DAY)
     Route: 048
     Dates: end: 20230428
  4. DIGOXIN [Suspect]
     Active Substance: DIGOXIN
     Indication: Cardiac failure
     Dosage: 0.25 MILLIGRAM, ONCE A DAY(0.25MG IN THE MORNING)
     Route: 048
     Dates: end: 20230428
  5. POTASSIUM CHLORIDE [Concomitant]
     Active Substance: POTASSIUM CHLORIDE
     Indication: Product used for unknown indication
     Dosage: UNK
     Route: 065
     Dates: end: 20230401

REACTIONS (5)
  - Hyperkalaemia [Recovering/Resolving]
  - Cardiac failure [Recovering/Resolving]
  - Renal failure [Recovering/Resolving]
  - Sinus node dysfunction [Recovering/Resolving]
  - Overdose [Recovered/Resolved]

NARRATIVE: CASE EVENT DATE: 20230428
